FAERS Safety Report 18695352 (Version 1)
Quarter: 2021Q1

REPORT INFORMATION
  Report Type: Spontaneous
  Country: US (occurrence: US)
  Receive Date: 20210102
  Receipt Date: 20210102
  Transmission Date: 20210419
  Serious: Yes (Hospitalization)
  Sender: FDA-Public Use
  Company Number: None

PATIENT
  Age: 61 Year
  Sex: Female

DRUGS (13)
  1. TADALAFIL 20MG TAB [Suspect]
     Active Substance: TADALAFIL
     Indication: PULMONARY ARTERIAL HYPERTENSION
     Route: 048
     Dates: start: 20181015
  2. REVATIO [Concomitant]
     Active Substance: SILDENAFIL CITRATE
  3. DIOVAN [Concomitant]
     Active Substance: VALSARTAN
  4. FISH OIL [Concomitant]
     Active Substance: FISH OIL
  5. CALCIUM [Concomitant]
     Active Substance: CALCIUM
  6. LEVOTHYROXIN [Concomitant]
     Active Substance: LEVOTHYROXINE
  7. KLOR?CON [Concomitant]
     Active Substance: POTASSIUM CHLORIDE
  8. LORATADINE. [Concomitant]
     Active Substance: LORATADINE
  9. AMBRISENTAN 10MG [Suspect]
     Active Substance: AMBRISENTAN
     Indication: PULMONARY ARTERIAL HYPERTENSION
     Route: 048
     Dates: start: 20200802
  10. FLUTICASONE. [Concomitant]
     Active Substance: FLUTICASONE
  11. SPIRONOLACT [Concomitant]
     Active Substance: SPIRONOLACTONE
  12. VISION FORM [Concomitant]
  13. LUTEIN [Concomitant]
     Active Substance: LUTEIN

REACTIONS (1)
  - Metabolic surgery [None]

NARRATIVE: CASE EVENT DATE: 20201229
